FAERS Safety Report 8355719-7 (Version None)
Quarter: 2012Q2

REPORT INFORMATION
  Report Type: 
  Country: None (occurrence: None)
  Receive Date: 20120514
  Receipt Date: 20120504
  Transmission Date: 20120825
  Serious: Yes (Hospitalization)
  Sender: FDA-Public Use
  Company Number: US-VERTEX PHARMACEUTICALS INC.-AE-2012-006485

PATIENT
  Sex: Male
  Weight: 81.72 kg

DRUGS (8)
  1. INCIVEK [Suspect]
     Indication: HEPATITIS C
     Route: 048
     Dates: start: 20120316
  2. NEURONTIN [Concomitant]
     Route: 048
  3. PEGASYS [Concomitant]
     Indication: HEPATITIS C
     Route: 058
     Dates: start: 20120316
  4. COGENTIN [Concomitant]
  5. RIBAVIRIN [Concomitant]
     Indication: HEPATITIS C
     Route: 048
     Dates: start: 20120316
  6. INDERAL [Concomitant]
     Indication: HYPERTENSION
     Route: 048
  7. GEODON [Concomitant]
     Route: 048
  8. WELLBUTRIN [Concomitant]
     Route: 048

REACTIONS (1)
  - MENTAL DISORDER [None]
